FAERS Safety Report 10384290 (Version 2)
Quarter: 2014Q4

REPORT INFORMATION
  Report Type: Spontaneous
  Country: IT (occurrence: IT)
  Receive Date: 20140814
  Receipt Date: 20141201
  Transmission Date: 20150528
  Serious: Yes (Hospitalization)
  Sender: FDA-Public Use
  Company Number: IT-UCBSA-2014008296

PATIENT
  Age: 14 Year
  Sex: Male
  Weight: 55 kg

DRUGS (4)
  1. FORMISTIN [Concomitant]
     Dosage: UNK
  2. PARACETAMOL [Concomitant]
     Active Substance: ACETAMINOPHEN
     Dosage: UNK
  3. OKI [Suspect]
     Active Substance: KETOPROFEN LYSINE
     Indication: MYALGIA
     Dosage: 80 MG/ML
     Route: 048
     Dates: start: 20140525, end: 20140529
  4. XYZAL [Suspect]
     Active Substance: LEVOCETIRIZINE DIHYDROCHLORIDE
     Indication: RHINITIS ALLERGIC
     Dosage: 1 DF, ONCE DAILY (QD), 5 MG
     Route: 048
     Dates: start: 20140301

REACTIONS (6)
  - Dyspnoea [Recovered/Resolved]
  - Hyperhidrosis [Recovered/Resolved]
  - Dizziness [Recovered/Resolved]
  - Headache [Recovered/Resolved]
  - Presyncope [Recovered/Resolved]
  - Formication [Recovered/Resolved]

NARRATIVE: CASE EVENT DATE: 20140529
